FAERS Safety Report 8336069-1 (Version None)
Quarter: 2012Q2

REPORT INFORMATION
  Report Type: 
  Country: None (occurrence: None)
  Receive Date: 20120504
  Receipt Date: 20120426
  Transmission Date: 20120825
  Serious: Yes (Other)
  Sender: FDA-Public Use
  Company Number: GB-BAYER-2012-030405

PATIENT
  Sex: Female

DRUGS (2)
  1. MIRENA [Suspect]
     Indication: CONTRACEPTION
  2. MIRENA [Suspect]
     Indication: UTERINE LEIOMYOMA
     Dosage: 20 MCG/24HR, CONT
     Route: 015
     Dates: start: 20111208, end: 20120301

REACTIONS (12)
  - FUNGAL INFECTION [None]
  - DRUG HYPERSENSITIVITY [None]
  - VAGINAL DISCHARGE [None]
  - INFLAMMATION [None]
  - PURULENT DISCHARGE [None]
  - COMPLICATION OF DEVICE REMOVAL [None]
  - ABDOMINAL DISTENSION [None]
  - DRY SKIN [None]
  - SKIN REACTION [None]
  - MENSTRUATION DELAYED [None]
  - MIGRAINE [None]
  - ERYTHEMA [None]
